FAERS Safety Report 8481217-6 (Version None)
Quarter: 2012Q3

REPORT INFORMATION
  Report Type: 
  Country: None (occurrence: None)
  Receive Date: 20120702
  Receipt Date: 20120622
  Transmission Date: 20120928
  Serious: Yes (Hospitalization, Other)
  Sender: FDA-Public Use
  Company Number: CA-SANOFI-AVENTIS-2012SA034376

PATIENT
  Age: 72 Year
  Sex: Male
  Weight: 65.4 kg

DRUGS (14)
  1. CABAZITAXEL [Suspect]
     Indication: PROSTATE CANCER
     Route: 041
     Dates: start: 20111124, end: 20111124
  2. MICARDIS HCT [Concomitant]
     Indication: HYPERTENSION
     Dosage: 80/12.5 MG
     Route: 048
     Dates: start: 20091215
  3. COUMADIN [Concomitant]
     Indication: ATRIAL FIBRILLATION
     Dosage: DOSE PER INR
     Route: 048
     Dates: start: 20100112
  4. HYDROMORPHONE HCL [Concomitant]
     Route: 048
     Dates: start: 20111102
  5. BISOPROLOL FUMARATE [Concomitant]
     Indication: HYPERTENSION
     Route: 048
     Dates: start: 20091211
  6. FUROSEMIDE [Concomitant]
     Indication: CARDIOVASCULAR EVENT PROPHYLAXIS
     Route: 048
     Dates: start: 20091228
  7. ANTACIDS [Concomitant]
     Indication: OSTEOPOROSIS PROPHYLAXIS
     Route: 048
     Dates: start: 20100223
  8. AMLODIPINE [Concomitant]
     Indication: HYPERTENSION
     Route: 048
     Dates: start: 20100218
  9. ZOLADEX [Concomitant]
     Indication: PROSTATE CANCER
     Route: 058
     Dates: start: 20110731
  10. ACETAMINOPHEN [Concomitant]
     Route: 048
     Dates: start: 20110101
  11. CABAZITAXEL [Suspect]
     Route: 041
     Dates: start: 20120426, end: 20120426
  12. ATORVASTATIN [Concomitant]
     Route: 048
     Dates: start: 20100708
  13. PREDNISONE TAB [Suspect]
     Indication: PROSTATE CANCER
     Route: 048
     Dates: start: 20111124
  14. AMIODARONE HYDROCHLORIDE [Concomitant]
     Route: 048
     Dates: start: 20091211

REACTIONS (1)
  - COLITIS [None]
